FAERS Safety Report 23178214 (Version 1)
Quarter: 2023Q4

REPORT INFORMATION
  Report Type: Spontaneous
  Country: US (occurrence: None)
  Receive Date: 20231113
  Receipt Date: 20231113
  Transmission Date: 20240110
  Serious: Yes (Hospitalization)
  Sender: FDA-Public Use
  Company Number: None

PATIENT
  Sex: Male

DRUGS (1)
  1. ZIEXTENZO [Suspect]
     Active Substance: PEGFILGRASTIM-BMEZ
     Indication: Colon cancer
     Dosage: OTHER FREQUENCY : Q 14 DAYS;?
     Route: 058
     Dates: start: 202303

REACTIONS (1)
  - Febrile neutropenia [None]
